FAERS Safety Report 6800834-X (Version None)
Quarter: 2010Q2

REPORT INFORMATION
  Report Type: 
  Country: None (occurrence: None)
  Receive Date: 20100629
  Receipt Date: 20100618
  Transmission Date: 20101027
  Serious: Yes (Congenital Anomaly)
  Sender: FDA-Public Use
  Company Number: US-BRISTOL-MYERS SQUIBB COMPANY-12035572

PATIENT
  Sex: Female
  Weight: 2 kg

DRUGS (5)
  1. SUSTIVA [Suspect]
     Dosage: ONGOING AT CONCEPTION
     Route: 064
     Dates: end: 20020114
  2. COMBIVIR [Suspect]
     Dosage: ONGOING AT THE TIME OF CONCEPTION
     Route: 064
     Dates: end: 20020215
  3. TRIZIVIR [Suspect]
     Route: 064
     Dates: start: 20020218, end: 20020710
  4. TENOFOVIR [Suspect]
     Route: 064
     Dates: start: 20020218, end: 20020710
  5. RETROVIR [Suspect]
     Route: 064
     Dates: start: 20020710, end: 20020710

REACTIONS (2)
  - CLEFT PALATE [None]
  - PREGNANCY [None]
